FAERS Safety Report 7800375-7 (Version None)
Quarter: 2011Q4

REPORT INFORMATION
  Report Type: 
  Country: None (occurrence: None)
  Receive Date: 20111006
  Receipt Date: 20110926
  Transmission Date: 20120403
  Serious: Yes (Hospitalization)
  Sender: FDA-Public Use
  Company Number: US-BAYER-2011-009457

PATIENT
  Sex: Female
  Weight: 102.4 kg

DRUGS (3)
  1. YAZ [Suspect]
     Indication: PREMENSTRUAL SYNDROME
  2. YAZ [Suspect]
     Indication: ACNE
  3. YAZ [Suspect]
     Indication: CONTRACEPTION
     Dosage: UNK
     Dates: start: 20080901, end: 20090101

REACTIONS (9)
  - PAIN [None]
  - ANXIETY [None]
  - FEAR [None]
  - ABDOMINAL PAIN [None]
  - CHOLELITHIASIS [None]
  - DYSPEPSIA [None]
  - GALLBLADDER DISORDER [None]
  - EMOTIONAL DISTRESS [None]
  - MENTAL DISORDER [None]
